FAERS Safety Report 16132298 (Version 1)
Quarter: 2019Q2

REPORT INFORMATION
  Report Type: Spontaneous
  Country: US (occurrence: US)
  Receive Date: 20190328
  Receipt Date: 20190328
  Transmission Date: 20190711
  Serious: Yes (Life-Threatening, Hospitalization, Other)
  Sender: FDA-Public Use
  Company Number: None

PATIENT
  Age: 66 Year
  Sex: Male
  Weight: 62.8 kg

DRUGS (3)
  1. PEMBROLIZUMAB. [Suspect]
     Active Substance: PEMBROLIZUMAB
     Indication: BLADDER CANCER STAGE IV
     Dosage: ?          OTHER FREQUENCY:EVERY 21 DAYS;?
     Route: 041
     Dates: start: 20180816, end: 20181018
  2. LOSARTAN 50 MG 1 TAB PO DAILY [Concomitant]
  3. NORCO 5/325 MG 1-2 TAB PO Q4HR PRN PAIN [Concomitant]
     Dates: start: 20180607

REACTIONS (11)
  - Ventricular extrasystoles [None]
  - Diabetic ketoacidosis [None]
  - Pancreatic failure [None]
  - Dialysis [None]
  - Enterococcal sepsis [None]
  - Hyperglycaemia [None]
  - Myocardial infarction [None]
  - Acute kidney injury [None]
  - Nephritis [None]
  - Myocarditis [None]
  - Urinary tract infection enterococcal [None]

NARRATIVE: CASE EVENT DATE: 20181018
